FAERS Safety Report 20173038 (Version 2)
Quarter: 2022Q1

REPORT INFORMATION
  Report Type: Report from Study
  Country: DE (occurrence: DE)
  Receive Date: 20211211
  Receipt Date: 20220122
  Transmission Date: 20220423
  Serious: Yes (Hospitalization)
  Sender: FDA-Public Use
  Company Number: DE-SHIRE-ALL1-2013-04522

PATIENT
  Age: 31 Year
  Sex: Male
  Weight: 69 kg

DRUGS (7)
  1. IDURSULFASE [Suspect]
     Active Substance: IDURSULFASE
     Indication: Mucopolysaccharidosis II
     Dosage: 0.5 MG/KG, 1X/WEEK
     Route: 041
     Dates: start: 20040113
  2. IDURSULFASE [Suspect]
     Active Substance: IDURSULFASE
     Dosage: 40 MILLIGRAM, 1/WEEK
     Route: 042
     Dates: start: 201209
  3. ESOMEPRAZOLE [Concomitant]
     Active Substance: ESOMEPRAZOLE
     Indication: Gastrointestinal disorder
     Dosage: 20 MG, 1X/WEEK
     Route: 048
     Dates: start: 20111107
  4. RAMIPRIL [Concomitant]
     Active Substance: RAMIPRIL
     Indication: Cardiovascular disorder
     Dosage: 10 MG, 1X/DAY:QD
     Route: 048
     Dates: start: 20111107
  5. OMEPRAZOLE [Concomitant]
     Active Substance: OMEPRAZOLE
     Indication: Gastrointestinal disorder
     Dosage: 40 MG, 1X/DAY:QD
     Route: 048
     Dates: start: 20111107
  6. METAMIZOLE [Concomitant]
     Active Substance: METAMIZOLE
     Indication: Pain
     Dosage: 1 G, 3X/DAY:TID
     Route: 048
     Dates: start: 20111107
  7. DILTIAZEM HYDROCHLORIDE [Concomitant]
     Active Substance: DILTIAZEM HYDROCHLORIDE
     Indication: Cardiovascular disorder
     Dosage: 60 MG, 3X/DAY:TID
     Route: 048
     Dates: start: 201108

REACTIONS (4)
  - Carpal tunnel syndrome [Recovered/Resolved]
  - Periodontitis [Recovered/Resolved]
  - Dental caries [Recovered/Resolved]
  - Paronychia [Recovered/Resolved]

NARRATIVE: CASE EVENT DATE: 20130612
